FAERS Safety Report 16215491 (Version 1)
Quarter: 2019Q2

REPORT INFORMATION
  Report Type: Report from Study
  Country: CA (occurrence: CA)
  Receive Date: 20190419
  Receipt Date: 20190419
  Transmission Date: 20190711
  Serious: Yes (Other)
  Sender: FDA-Public Use
  Company Number: CA-BRISTOL-MYERS SQUIBB COMPANY-BMS-2019-035103

PATIENT
  Sex: Male

DRUGS (1)
  1. IPILIMUMAB [Suspect]
     Active Substance: IPILIMUMAB
     Indication: MALIGNANT MELANOMA
     Dosage: 80 MILLIGRAM, Q3WK
     Route: 065
     Dates: start: 20190222, end: 20190411

REACTIONS (6)
  - Abdominal pain [Unknown]
  - Pain [None]
  - Depression [Unknown]
  - Tachycardia [Unknown]
  - Malignant neoplasm progression [Unknown]
  - Arthralgia [Unknown]
